FAERS Safety Report 14787262 (Version 1)
Quarter: 2018Q2

REPORT INFORMATION
  Report Type: Spontaneous
  Country: ES (occurrence: ES)
  Receive Date: 20180421
  Receipt Date: 20180421
  Transmission Date: 20180711
  Serious: Yes (Life-Threatening, Hospitalization)
  Sender: FDA-Public Use
  Company Number: ES-AUROBINDO-AUR-APL-2018-020595

PATIENT
  Age: 71 Year
  Sex: Male

DRUGS (3)
  1. LEVOFLOXACIN. [Interacting]
     Active Substance: LEVOFLOXACIN
     Indication: RESPIRATORY TRACT INFECTION
     Dosage: 500MG CADA 24 HORAS
     Route: 048
     Dates: start: 20171125, end: 20171128
  2. AMIODARONE [Suspect]
     Active Substance: AMIODARONE
     Indication: ATRIAL FIBRILLATION
     Dosage: 100MG CADA 24H
     Route: 048
     Dates: start: 20170908, end: 20171128
  3. SOTALOL. [Interacting]
     Active Substance: SOTALOL
     Indication: SUPRAVENTRICULAR TACHYCARDIA
     Dosage: 80MG CADA 12H
     Route: 048
     Dates: start: 20171125, end: 20171128

REACTIONS (1)
  - Ventricular tachycardia [Recovered/Resolved]

NARRATIVE: CASE EVENT DATE: 20171128
